FAERS Safety Report 13222023 (Version 1)
Quarter: 2017Q1

REPORT INFORMATION
  Report Type: Other
  Country: US (occurrence: US)
  Receive Date: 20170211
  Receipt Date: 20170211
  Transmission Date: 20170428
  Serious: No
  Sender: FDA-Public Use
  Company Number: US-ACORDA-ACO_132230_2016

PATIENT
  Age: 49 Year
  Sex: Female

DRUGS (2)
  1. AMPYRA [Suspect]
     Active Substance: DALFAMPRIDINE
     Indication: PRODUCT USED FOR UNKNOWN INDICATION
     Dosage: UNK
     Route: 065
  2. TYSABRI [Suspect]
     Active Substance: NATALIZUMAB
     Indication: PRODUCT USED FOR UNKNOWN INDICATION
     Dosage: UNK
     Route: 065

REACTIONS (25)
  - Fear [Unknown]
  - Condition aggravated [Unknown]
  - Nervousness [Unknown]
  - Headache [Unknown]
  - Musculoskeletal stiffness [Unknown]
  - Peroneal nerve palsy [Unknown]
  - Back pain [Unknown]
  - Somnolence [Unknown]
  - Mobility decreased [Unknown]
  - Paranoia [Unknown]
  - Urticaria [Unknown]
  - Migraine [Unknown]
  - Tremor [Unknown]
  - Food allergy [Unknown]
  - Fall [Unknown]
  - Visual impairment [Unknown]
  - Asthenia [Unknown]
  - Insomnia [Unknown]
  - Central nervous system lesion [None]
  - Distractibility [Unknown]
  - Vein disorder [Unknown]
  - Hypersensitivity [Unknown]
  - Paraesthesia [Unknown]
  - Movement disorder [Unknown]
  - Depression [Unknown]
